FAERS Safety Report 10709846 (Version 1)
Quarter: 2015Q1

REPORT INFORMATION
  Report Type: Spontaneous
  Country: US (occurrence: None)
  Receive Date: 20150113
  Receipt Date: 20150113
  Transmission Date: 20150721
  Serious: Yes (Hospitalization)
  Sender: FDA-Public Use
  Company Number: None

PATIENT
  Age: 56 Year
  Sex: Female
  Weight: 63 kg

DRUGS (7)
  1. NEULASTA [Concomitant]
     Active Substance: PEGFILGRASTIM
  2. LYRICA [Concomitant]
     Active Substance: PREGABALIN
  3. NEULASTA [Suspect]
     Active Substance: PEGFILGRASTIM
     Indication: PROPHYLAXIS
     Dates: start: 20150108
  4. CISPLATIN. [Concomitant]
     Active Substance: CISPLATIN
  5. NEULASTA [Suspect]
     Active Substance: PEGFILGRASTIM
     Indication: NEUTROPENIA
     Dates: start: 20150108
  6. SYNTHROID [Concomitant]
     Active Substance: LEVOTHYROXINE SODIUM
  7. ETOPOSIDE. [Concomitant]
     Active Substance: ETOPOSIDE

REACTIONS (11)
  - Speech disorder [None]
  - Loss of consciousness [None]
  - Pallor [None]
  - Blood pressure decreased [None]
  - Oxygen saturation decreased [None]
  - Eye movement disorder [None]
  - Feeling hot [None]
  - Staring [None]
  - Erythema [None]
  - Miosis [None]
  - Chest discomfort [None]

NARRATIVE: CASE EVENT DATE: 20150108
